FAERS Safety Report 6511131-4 (Version None)
Quarter: 2009Q4

REPORT INFORMATION
  Report Type: 
  Country: None (occurrence: None)
  Receive Date: 20091217
  Receipt Date: 20091120
  Transmission Date: 20100525
  Serious: Yes (Hospitalization)
  Sender: FDA-Public Use
  Company Number: CIO09020743

PATIENT
  Age: 82 Year
  Sex: Male
  Weight: 108.8 kg

DRUGS (8)
  1. METAMUCIL-2 [Suspect]
     Indication: CONSTIPATION
     Dosage: 1 TSP, 1/DAY FOR 1 DAY, ORAL
     Route: 048
     Dates: start: 20091119, end: 20091119
  2. METAMUCIL-2 [Suspect]
     Indication: CONSTIPATION
     Dosage: 5 CAPSUL, 1 ONLY FOR 1 DAY, ORAL
     Route: 048
     Dates: start: 20091119, end: 20091119
  3. METAMUCIL-2 [Suspect]
     Indication: CONSTIPATION
     Dosage: 2 WAFER, 1 ONLY FOR 1 DAY, ORAL
     Route: 048
     Dates: start: 20091119, end: 20091119
  4. ALTACE [Concomitant]
  5. ASPIRIN [Concomitant]
  6. EXFORGE /01634301/ (AMLODIPINE, VALSARTAN) [Concomitant]
  7. CHOLESTEROL-AND TRIGLYCERIDE REDUCERS [Concomitant]
  8. VARIOUS SUPPLEMENTS [Concomitant]

REACTIONS (5)
  - ABDOMINAL DISCOMFORT [None]
  - ABDOMINAL DISTENSION [None]
  - ABDOMINAL PAIN UPPER [None]
  - CHOLECYSTITIS [None]
  - DRUG INEFFECTIVE [None]
